FAERS Safety Report 8763614 (Version 1)
Quarter: 2012Q4

REPORT INFORMATION
  Report Type: 
  Country: US (occurrence: US)
  Receive Date: 20120831
  Receipt Date: 20120831
  Transmission Date: 20130627
  Serious: No
  Sender: FDA-Public Use
  Company Number: US-B.I. PHARMACEUTICALS,INC./RIDGEFIELD-2012-BP-20820BP

PATIENT
  Age: 81 Year
  Sex: Female

DRUGS (8)
  1. ZANTAC 150 (RANITIDINE HYDROCHLORIDE) [Suspect]
     Indication: DYSPEPSIA
     Route: 048
     Dates: start: 20120823
  2. ZANTAC 150 (RANITIDINE HYDROCHLORIDE) [Suspect]
     Indication: DYSPEPSIA
  3. SINGULAIR [Concomitant]
     Indication: ASTHMA
     Dosage: 10 mg
     Route: 048
     Dates: start: 2007
  4. EVISTA [Concomitant]
     Indication: OSTEOPOROSIS
     Dosage: 60 mg
     Route: 048
     Dates: start: 2007
  5. SYNTHROID [Concomitant]
     Indication: HYPOTHYROIDISM
     Dosage: 0.088 mcg
     Route: 048
     Dates: start: 2002
  6. VERAPAMIL [Concomitant]
     Indication: ARRHYTHMIA
     Dosage: 240 mg
     Route: 048
     Dates: start: 2007
  7. LISINOPRIL HYDROCHLOROTHIAZIDE [Concomitant]
     Indication: HYPERTENSION
     Route: 048
     Dates: start: 2007
  8. MULTIVITAMIN [Concomitant]
     Indication: SUPPLEMENTATION THERAPY
     Route: 048
     Dates: start: 2011

REACTIONS (1)
  - Faeces discoloured [Not Recovered/Not Resolved]
